FAERS Safety Report 8552344-X (Version None)
Quarter: 2012Q3

REPORT INFORMATION
  Report Type: 
  Country: None (occurrence: None)
  Receive Date: 20120731
  Receipt Date: 20120727
  Transmission Date: 20120928
  Serious: No
  Sender: FDA-Public Use
  Company Number: US-BAYER-2012-076012

PATIENT
  Age: 45 Year
  Sex: Female

DRUGS (11)
  1. BETASERON [Suspect]
     Dosage: .25 MG, QOD
     Route: 058
  2. GABAPENTIN [Concomitant]
     Dosage: 300 MG, UNK
  3. CARVEDILOL [Concomitant]
     Dosage: 25 MG, UNK
  4. ASA FREE CHW JR [Concomitant]
     Dosage: 160 MG, UNK
  5. AMLODIPINE [Concomitant]
     Dosage: 10 MG, UNK
  6. VESICARE [Concomitant]
     Dosage: 10 MG, UNK
  7. COREG [Concomitant]
     Dosage: 20 MG, UNK
  8. TRIAMTERENE AND HYDROCHLOROTHIAZIDE [Concomitant]
     Dosage: 75-50 MG
  9. MELOXICAM [Concomitant]
     Dosage: 15 MG, UNK
  10. BACLOFEN [Concomitant]
     Dosage: 20 MG, UNK
  11. SPIRONOLACTONE W/ HYDROCHLOROTHIAZIDE [Concomitant]
     Dosage: 25/25

REACTIONS (3)
  - MUSCLE SPASMS [None]
  - VOMITING [None]
  - INFLUENZA LIKE ILLNESS [None]
